FAERS Safety Report 25943015 (Version 1)
Quarter: 2025Q4

REPORT INFORMATION
  Report Type: Spontaneous
  Country: US (occurrence: None)
  Receive Date: 20251020
  Receipt Date: 20251020
  Transmission Date: 20260117
  Serious: Yes (Death)
  Sender: FDA-CTU
  Company Number: None

PATIENT
  Age: 67 Year
  Sex: Male
  Weight: 88.65 kg

DRUGS (1)
  1. DONANEMAB [Suspect]
     Active Substance: DONANEMAB
     Indication: Dementia Alzheimer^s type
     Dosage: OTHER FREQUENCY : 1 TIME PER MONTH;?
     Route: 041
     Dates: start: 20250904, end: 20251002

REACTIONS (9)
  - Hypoxic-ischaemic encephalopathy [None]
  - Ventricular fibrillation [None]
  - Cardiac arrest [None]
  - Type 2 diabetes mellitus [None]
  - Hypertension [None]
  - Bundle branch block left [None]
  - Coronary artery stenosis [None]
  - Cardiac arrest [None]
  - Loss of consciousness [None]

NARRATIVE: CASE EVENT DATE: 20251010
